FAERS Safety Report 5812720-2 (Version None)
Quarter: 2008Q3

REPORT INFORMATION
  Report Type: 
  Country: None (occurrence: None)
  Receive Date: 20080714
  Receipt Date: 20080714
  Transmission Date: 20090109
  Serious: No
  Sender: FDA-Public Use
  Company Number: None

PATIENT
  Age: 66 Year
  Sex: Female
  Weight: 54.4316 kg

DRUGS (2)
  1. DIAZEPAM [Suspect]
     Indication: ANXIETY
     Dosage: 5 MG. Q6HR./PRN PO
     Route: 048
     Dates: start: 20080701, end: 20080711
  2. DIAZEPAM [Suspect]
     Indication: SLEEP DISORDER
     Dosage: 5 MG. Q6HR./PRN PO
     Route: 048
     Dates: start: 20080701, end: 20080711

REACTIONS (3)
  - DRUG EFFECT DECREASED [None]
  - PHARMACEUTICAL PRODUCT COMPLAINT [None]
  - THERAPEUTIC RESPONSE UNEXPECTED WITH DRUG SUBSTITUTION [None]
